FAERS Safety Report 8449189-8 (Version None)
Quarter: 2012Q2

REPORT INFORMATION
  Report Type: 
  Country: None (occurrence: None)
  Receive Date: 20120619
  Receipt Date: 20120614
  Transmission Date: 20120825
  Serious: Yes (Hospitalization)
  Sender: FDA-Public Use
  Company Number: GB-ABBOTT-09P-163-0609129-00

PATIENT
  Sex: Male
  Weight: 99 kg

DRUGS (8)
  1. CEPHALEXIN [Concomitant]
     Indication: URINARY TRACT INFECTION
     Dates: start: 20090912, end: 20090919
  2. LISINOPRIL [Concomitant]
     Indication: HYPERTENSION
     Dates: start: 20040101
  3. SUNITINIB MALATE [Suspect]
     Indication: PROSTATE CANCER
     Route: 048
     Dates: start: 20090714
  4. WARFARIN SODIUM [Suspect]
     Indication: DEEP VEIN THROMBOSIS
     Route: 048
     Dates: start: 20090821
  5. DOXAZOSIN MESYLATE [Concomitant]
     Indication: HYPERTENSION
     Dates: start: 20040101
  6. OMEPRAZOLE [Concomitant]
     Indication: GASTRIC DISORDER
     Dates: start: 20040101
  7. PREDNISOLONE [Suspect]
     Indication: PROSTATE CANCER
     Dates: start: 20090714
  8. ZOLADEX [Concomitant]
     Indication: PROSTATE CANCER
     Dates: start: 20050101

REACTIONS (1)
  - DEVICE OCCLUSION [None]
